FAERS Safety Report 8337062-5 (Version None)
Quarter: 2012Q2

REPORT INFORMATION
  Report Type: 
  Country: None (occurrence: None)
  Receive Date: 20120501
  Receipt Date: 20120426
  Transmission Date: 20120825
  Serious: Yes (Life-Threatening, Disabling)
  Sender: FDA-Public Use
  Company Number: GER/UKI/12/0024093

PATIENT
  Age: 78 Year
  Sex: Female

DRUGS (3)
  1. FUROSEMIDE [Concomitant]
  2. ACETAMINOPHEN W/ CODEINE [Concomitant]
  3. DONEPEZIL HCL [Suspect]
     Indication: DEMENTIA ALZHEIMER'S TYPE
     Dosage: 5 MG, ORAL
     Route: 048
     Dates: start: 20110926, end: 20120403

REACTIONS (1)
  - URINARY INCONTINENCE [None]
